FAERS Safety Report 17393522 (Version 1)
Quarter: 2020Q1

REPORT INFORMATION
  Report Type: Spontaneous
  Country: CN (occurrence: CN)
  Receive Date: 20200208
  Receipt Date: 20200208
  Transmission Date: 20200409
  Serious: Yes (Hospitalization, Other)
  Sender: FDA-Public Use
  Company Number: CN-BAXTER-2020BAX002631

PATIENT
  Age: 10 Year
  Sex: Female
  Weight: 40 kg

DRUGS (8)
  1. ETOPOSIDE. [Suspect]
     Active Substance: ETOPOSIDE
     Indication: OSTEOSARCOMA
     Dosage: ETOPOSIDE + NS, DAYS 1-4
     Route: 041
     Dates: start: 20200101, end: 20200104
  2. ETOPOSIDE. [Suspect]
     Active Substance: ETOPOSIDE
     Dosage: ETOPOSIDE + NS, DOSE RE-INTRODUCED
     Route: 041
     Dates: start: 202001
  3. HOLOXAN [Suspect]
     Active Substance: IFOSFAMIDE
     Dosage: HOLOXAN + NS, DOSE RE-INTRODUCED
     Route: 041
     Dates: start: 202001
  4. 0.9% SODIUM CHLORIDE INJECTION [Suspect]
     Active Substance: SODIUM CHLORIDE
     Dosage: HOLOXAN + NS, DOSE RE-INTRODUCED
     Route: 041
     Dates: start: 202001
  5. 0.9% SODIUM CHLORIDE INJECTION [Suspect]
     Active Substance: SODIUM CHLORIDE
     Indication: MEDICATION DILUTION
     Dosage: HOLOXAN + NS, DAYS 1-4
     Route: 041
     Dates: start: 20200101, end: 20200104
  6. 0.9% SODIUM CHLORIDE INJECTION [Suspect]
     Active Substance: SODIUM CHLORIDE
     Dosage: ETOPOSIDE + NS, DAYS 1-4
     Route: 041
     Dates: start: 20200101, end: 20200104
  7. HOLOXAN [Suspect]
     Active Substance: IFOSFAMIDE
     Indication: OSTEOSARCOMA
     Dosage: HOLOXAN + NS 500 ML, DAYS 1-4
     Route: 041
     Dates: start: 20200101, end: 20200104
  8. 0.9% SODIUM CHLORIDE INJECTION [Suspect]
     Active Substance: SODIUM CHLORIDE
     Dosage: ETOPOSIDE + NS, DOSE RE-INTRODUCED
     Route: 041
     Dates: start: 202001

REACTIONS (1)
  - Bone marrow failure [Recovering/Resolving]

NARRATIVE: CASE EVENT DATE: 20200109
